FAERS Safety Report 9158498 (Version 3)
Quarter: 2014Q2

REPORT INFORMATION
  Report Type: Spontaneous
  Country: US (occurrence: US)
  Receive Date: 20130312
  Receipt Date: 20140609
  Transmission Date: 20141212
  Serious: Yes (Hospitalization, Other)
  Sender: FDA-Public Use
  Company Number: US-BAYER-2013-015743

PATIENT
  Age: 81 Year
  Sex: Male
  Weight: 89 kg

DRUGS (11)
  1. XARELTO [Suspect]
     Indication: CEREBROVASCULAR ACCIDENT PROPHYLAXIS
     Dosage: 20 MG, QD
     Route: 048
     Dates: start: 20121224, end: 20130111
  2. XARELTO [Suspect]
     Indication: ATRIAL FIBRILLATION
  3. ACETYLSALICYLIC ACID({=100 MG) [Suspect]
     Indication: ARTHRALGIA
     Dosage: 81 MG, UNK
  4. ALEVE GELCAP [Suspect]
     Route: 065
  5. DRONEDARONE [Suspect]
     Indication: ATRIAL FIBRILLATION
     Dosage: 400 MG, BID
     Route: 048
     Dates: start: 20121224
  6. IBUPROFEN [Suspect]
     Indication: ARTHRALGIA
     Route: 065
  7. FERROUS SULFATE [Concomitant]
     Dosage: 325 MG, UNK
     Route: 048
  8. METOPROLOL TARTRATE [Concomitant]
     Dosage: 12.5 MG, BID
     Route: 048
  9. PROTONIX [Concomitant]
     Dosage: 40 MG, BID
     Route: 048
  10. ALPRAZOLAM [Concomitant]
     Dosage: .5 MG, UNK
     Route: 048
  11. LOVASTATIN [Concomitant]
     Dosage: 40 MG, UNK
     Route: 048

REACTIONS (3)
  - Duodenal ulcer [Recovering/Resolving]
  - Rectal haemorrhage [Unknown]
  - Dizziness [Unknown]
